FAERS Safety Report 25242260 (Version 1)
Quarter: 2025Q2

REPORT INFORMATION
  Report Type: Report from Study
  Country: US (occurrence: US)
  Receive Date: 20250426
  Receipt Date: 20250426
  Transmission Date: 20250717
  Serious: Yes (Other)
  Sender: ABBVIE
  Company Number: US-ABBVIE-6246853

PATIENT
  Age: 48 Year
  Sex: Female

DRUGS (2)
  1. RINVOQ [Suspect]
     Active Substance: UPADACITINIB
     Indication: Psoriatic arthropathy
     Dosage: STRENGTH:15MG, EXTENDED RELEASE TABLET
     Route: 048
     Dates: start: 2023, end: 2024
  2. RINVOQ [Suspect]
     Active Substance: UPADACITINIB
     Indication: Psoriatic arthropathy
     Dosage: STRENGTH:15MG, EXTENDED RELEASE TABLET
     Route: 048
     Dates: start: 202503

REACTIONS (6)
  - Appendicectomy [Unknown]
  - Arthralgia [Unknown]
  - Crohn^s disease [Not Recovered/Not Resolved]
  - Intra-abdominal fluid collection [Unknown]
  - Alopecia [Unknown]
  - Colectomy [Unknown]

NARRATIVE: CASE EVENT DATE: 20240101
